FAERS Safety Report 7283317-5 (Version None)
Quarter: 2011Q1

REPORT INFORMATION
  Report Type: 
  Country: None (occurrence: None)
  Receive Date: 20110209
  Receipt Date: 20110131
  Transmission Date: 20110831
  Serious: Yes (Hospitalization)
  Sender: FDA-Public Use
  Company Number: FR-JNJFOC-20090705029

PATIENT
  Sex: Female

DRUGS (9)
  1. ASPIRIN [Concomitant]
     Dosage: LONG STANDING THERAPY
     Route: 065
  2. RISPERDAL [Suspect]
     Indication: AGITATION
     Route: 048
  3. LYSANXIA [Concomitant]
     Dosage: LONG STANDING THERAPY
     Route: 048
  4. LOVENOX [Suspect]
     Indication: THROMBOSIS PROPHYLAXIS
     Route: 058
  5. IMOVANE [Concomitant]
     Route: 065
  6. ACETAMINOPHEN [Concomitant]
     Route: 065
  7. CONTRAMAL [Suspect]
     Indication: BACK PAIN
     Route: 048
  8. FORLAX [Concomitant]
     Dosage: LONG STANDING THERAPY
     Route: 065
  9. DEPAKOTE [Suspect]
     Indication: BIPOLAR I DISORDER
     Route: 048

REACTIONS (1)
  - CYTOLYTIC HEPATITIS [None]
